FAERS Safety Report 9909648 (Version 2)
Quarter: 2014Q2

REPORT INFORMATION
  Report Type: Spontaneous
  Country: FR (occurrence: FR)
  Receive Date: 20140219
  Receipt Date: 20140402
  Transmission Date: 20141212
  Serious: Yes (Death, Hospitalization)
  Sender: FDA-Public Use
  Company Number: FR-GLAXOSMITHKLINE-B0968941A

PATIENT
  Age: 55 Year
  Sex: Male

DRUGS (5)
  1. ARIXTRA [Suspect]
     Indication: PRODUCT USED FOR UNKNOWN INDICATION
     Dosage: 7.5MG PER DAY
     Route: 058
     Dates: start: 20131213, end: 20140205
  2. LASILIX [Concomitant]
     Dosage: 40MG PER DAY
     Dates: start: 20131213, end: 20140205
  3. ALDACTONE [Concomitant]
     Dosage: 25MG PER DAY
     Dates: start: 20131213, end: 20140205
  4. AMIODARONE [Concomitant]
     Dosage: 200MG PER DAY
     Dates: start: 20131213, end: 20140205
  5. BISOPROLOL [Concomitant]
     Dosage: 5MG PER DAY
     Dates: start: 20131213, end: 20140205

REACTIONS (8)
  - Cerebral haemorrhage [Fatal]
  - Intracranial pressure increased [Unknown]
  - Coma [Unknown]
  - Aphasia [Unknown]
  - Skin discolouration [Unknown]
  - Mydriasis [Unknown]
  - Incorrect drug administration duration [Unknown]
  - Hemiplegia [Unknown]
